FAERS Safety Report 7432255-3 (Version None)
Quarter: 2011Q2

REPORT INFORMATION
  Report Type: 
  Country: None (occurrence: None)
  Receive Date: 20110422
  Receipt Date: 20110411
  Transmission Date: 20111010
  Serious: Yes (Hospitalization)
  Sender: FDA-Public Use
  Company Number: CA-JNJFOC-20110202623

PATIENT
  Age: 16 Year
  Sex: Female

DRUGS (6)
  1. URSODIOL [Concomitant]
     Indication: PORTAL HYPERTENSION
  2. INFLIXIMAB, RECOMBINANT [Suspect]
     Indication: CROHN'S DISEASE
     Dosage: STARTED 6 MONTHS BEFORE HOSPITAL ADMISSION
     Route: 042
  3. NADOLOL [Concomitant]
     Indication: PORTAL HYPERTENSION
  4. MESALAMINE [Concomitant]
     Indication: CROHN'S DISEASE
  5. AZATHIOPRINE [Concomitant]
     Indication: CROHN'S DISEASE
  6. TRIENTINE [Concomitant]
     Indication: PORTAL HYPERTENSION

REACTIONS (2)
  - CARDIAC MURMUR [None]
  - EPSTEIN-BARR VIRUS ASSOCIATED LYMPHOPROLIFERATIVE DISORDER [None]
